FAERS Safety Report 8875040 (Version 1)
Quarter: 2012Q4

REPORT INFORMATION
  Report Type: 
  Country: US (occurrence: US)
  Receive Date: 20121023
  Receipt Date: 20121023
  Transmission Date: 20130627
  Serious: No
  Sender: FDA-Public Use
  Company Number: US-ROCHE-GNE235391

PATIENT
  Age: 49 Year
  Sex: Female

DRUGS (2)
  1. RAPTIVA [Suspect]
     Indication: PSORIASIS
     Dosage: 0.5 mL, single
     Route: 058
     Dates: start: 20070118
  2. RAPTIVA [Suspect]
     Indication: PUSTULAR PSORIASIS

REACTIONS (5)
  - Accidental overdose [Unknown]
  - Chills [Unknown]
  - Skin exfoliation [Unknown]
  - Skin fissures [Unknown]
  - Haemorrhage [Unknown]
